FAERS Safety Report 9692897 (Version 1)
Quarter: 2013Q4

REPORT INFORMATION
  Report Type: Report from Study
  Country: US (occurrence: US)
  Receive Date: 20131118
  Receipt Date: 20131118
  Transmission Date: 20140711
  Serious: Yes (Hospitalization, Other)
  Sender: FDA-Public Use
  Company Number: US-US-EMD SERONO, INC.-7249466

PATIENT
  Age: 52 Year
  Sex: Female
  Weight: 100 kg

DRUGS (2)
  1. REBIF [Suspect]
     Indication: MULTIPLE SCLEROSIS
     Route: 058
     Dates: start: 20100813
  2. NEURONTIN [Concomitant]
     Indication: MULTIPLE SCLEROSIS

REACTIONS (13)
  - Pulmonary embolism [Recovered/Resolved]
  - Atrial fibrillation [Recovered/Resolved]
  - Echocardiogram abnormal [Unknown]
  - Deep vein thrombosis [Not Recovered/Not Resolved]
  - Thrombosis [Recovered/Resolved]
  - Bacterial infection [Not Recovered/Not Resolved]
  - Skin lesion [Recovering/Resolving]
  - Dizziness [Recovered/Resolved]
  - Animal scratch [Unknown]
  - Scab [Not Recovered/Not Resolved]
  - Scar [Not Recovered/Not Resolved]
  - Abscess drainage [Unknown]
  - Pruritus [Not Recovered/Not Resolved]
